FAERS Safety Report 8888179 (Version 3)
Quarter: 2012Q4

REPORT INFORMATION
  Report Type: 
  Country: JP (occurrence: JP)
  Receive Date: 20121106
  Receipt Date: 20121126
  Transmission Date: 20130627
  Serious: Yes (Hospitalization)
  Sender: FDA-Public Use
  Company Number: JP-ASTRAZENECA-2012SE82305

PATIENT
  Age: 92 Year
  Sex: Female
  Weight: 29 kg

DRUGS (14)
  1. NEXIUM [Suspect]
     Indication: GASTRIC ULCER
     Route: 048
     Dates: start: 20120823, end: 20121019
  2. MUCOSTA [Suspect]
     Indication: GASTRIC ULCER
     Route: 048
     Dates: start: 20120823, end: 20121019
  3. MUCOSTA [Suspect]
     Indication: GASTRIC ULCER
     Route: 048
     Dates: start: 20121024, end: 20121029
  4. GASMOTIN [Concomitant]
     Route: 048
     Dates: start: 20120823, end: 20121020
  5. ALESION [Concomitant]
     Indication: PRURITUS
     Route: 048
     Dates: start: 20120913, end: 20121019
  6. ROCEPHIN [Concomitant]
     Dosage: Dose unknown
     Route: 065
  7. ISOTONIC SODIUM CHLORIDE SOLUTION KIT [Concomitant]
     Dosage: Dose unknown
     Route: 065
  8. NEOPAREN NO.2 [Concomitant]
     Dosage: Dose unknown
     Route: 065
  9. PHYSIO 140 [Concomitant]
     Dosage: Dose unknown
     Route: 065
  10. PHYSIO 35 [Concomitant]
     Dosage: Dose unknown
     Route: 065
  11. ASPARA K [Concomitant]
     Dosage: Dose unknown
     Route: 065
  12. GLUCOSE [Concomitant]
     Dosage: Dose unknown
     Route: 065
  13. NAUZELIN [Concomitant]
     Dosage: Dose unknown
     Route: 048
  14. SODIUM CHLORIDE [Concomitant]
     Dosage: Dose unknown
     Route: 065

REACTIONS (4)
  - Blood pressure decreased [Recovered/Resolved]
  - Pyloric stenosis [Not Recovered/Not Resolved]
  - Decreased appetite [Recovered/Resolved]
  - Pancytopenia [Recovering/Resolving]
